FAERS Safety Report 19613855 (Version 4)
Quarter: 2022Q2

REPORT INFORMATION
  Report Type: Spontaneous
  Country: None (occurrence: PT)
  Receive Date: 20210727
  Receipt Date: 20220411
  Transmission Date: 20220720
  Serious: Yes (Life-Threatening, Other)
  Sender: FDA-Public Use
  Company Number: PT-AKCEA THERAPEUTICS-2021IS001089

PATIENT
  Age: 49 Year
  Sex: Male
  Weight: 93.227 kg

DRUGS (3)
  1. TEGSEDI [Suspect]
     Active Substance: INOTERSEN SODIUM
     Indication: Hereditary neuropathic amyloidosis
     Route: 058
     Dates: start: 20151125, end: 20210120
  2. DEVICE [Suspect]
     Active Substance: DEVICE
  3. RETINOL [Concomitant]
     Active Substance: RETINOL
     Route: 065
     Dates: start: 201402

REACTIONS (9)
  - Hepatosplenomegaly [Not Recovered/Not Resolved]
  - Renal impairment [Not Recovered/Not Resolved]
  - Non-cirrhotic portal hypertension [Not Recovered/Not Resolved]
  - Hepatic amyloidosis [Not Recovered/Not Resolved]
  - Hepatic function abnormal [Not Recovered/Not Resolved]
  - Thrombocytopenia [Recovered/Resolved]
  - Cholestasis [Not Recovered/Not Resolved]
  - Hepatic enzyme abnormal [Not Recovered/Not Resolved]
  - Renal amyloidosis [Unknown]

NARRATIVE: CASE EVENT DATE: 20190929
